FAERS Safety Report 25645051 (Version 1)
Quarter: 2025Q3

REPORT INFORMATION
  Report Type: Spontaneous
  Country: CL (occurrence: CL)
  Receive Date: 20250805
  Receipt Date: 20250805
  Transmission Date: 20251021
  Serious: Yes (Other)
  Sender: MACLEODS
  Company Number: CL-MACLEODS PHARMA-MAC2025054447

PATIENT

DRUGS (1)
  1. LEVOTHYROXINE [Suspect]
     Active Substance: LEVOTHYROXINE
     Indication: Hypothyroidism
     Route: 048

REACTIONS (6)
  - Angioedema [Recovering/Resolving]
  - Type I hypersensitivity [Recovering/Resolving]
  - Oedema genital [Recovering/Resolving]
  - Eyelid oedema [Recovering/Resolving]
  - Tongue oedema [Recovering/Resolving]
  - Abdominal pain [Recovering/Resolving]
